FAERS Safety Report 18725002 (Version 1)
Quarter: 2021Q1

REPORT INFORMATION
  Report Type: Spontaneous
  Country: FR (occurrence: FR)
  Receive Date: 20210111
  Receipt Date: 20210111
  Transmission Date: 20210419
  Serious: Yes (Hospitalization, Other)
  Sender: FDA-Public Use
  Company Number: FR-CHEPLA-C20210051

PATIENT
  Age: 70 Year
  Sex: Female
  Weight: 55 kg

DRUGS (20)
  1. ZOPICLONE [Suspect]
     Active Substance: ZOPICLONE
     Indication: ANALGESIC THERAPY
     Dosage: 7.5 MG, PRN
     Dates: start: 20201028, end: 20201114
  2. DEXAMETHASONE. [Suspect]
     Active Substance: DEXAMETHASONE
     Dates: start: 20201029
  3. ACICLOVIR [Suspect]
     Active Substance: ACYCLOVIR
     Dosage: 500 MG
     Dates: start: 20201030, end: 20201030
  4. ALPRAZOLAM. [Suspect]
     Active Substance: ALPRAZOLAM
     Indication: ANALGESIC THERAPY
     Dosage: 0.5 MG, DAILY
     Dates: start: 20201028, end: 20201104
  5. PHOSPHONEUROS [Suspect]
     Active Substance: CALCIUM PHOSPHATE, DIBASIC, ANHYDROUS\MAGNESIUM GLYCEROPHOSPHATE\PHOSPHORIC ACID\SODIUM PHOSPHATE, DIBASIC
     Dosage: 180 DRP, DAILY
     Dates: start: 20201105
  6. METOCLOPRAMIDE. [Concomitant]
     Active Substance: METOCLOPRAMIDE
     Dosage: 20 MG, DAILY
     Dates: start: 20201101
  7. AMLODIPINE [Suspect]
     Active Substance: AMLODIPINE BESYLATE
     Dosage: 5 MG, DAILY
     Dates: start: 20201114
  8. KARDEGIC [Suspect]
     Active Substance: ASPIRIN DL-LYSINE
     Dosage: 75 MG, DAILY
     Dates: start: 20201029
  9. RACECADOTRIL [Concomitant]
     Active Substance: RACECADOTRIL
     Dosage: 600 MG, DAILY
     Dates: start: 20201101
  10. DEXAMETHASONE ACETATE [Suspect]
     Active Substance: DEXAMETHASONE ACETATE
     Dosage: 3 MG, DAILY
     Dates: start: 20201029
  11. FOSCARNET SODIUM. [Suspect]
     Active Substance: FOSCARNET SODIUM
     Indication: RETINITIS VIRAL
     Dosage: 4500 MG EVERY 12 HOURS
     Dates: start: 20201101, end: 20201113
  12. ONDANSETRON [Concomitant]
     Active Substance: ONDANSETRON
     Dosage: 24 MG, DAILY
     Dates: start: 2020
  13. GANCICLOVIR. [Suspect]
     Active Substance: GANCICLOVIR
     Indication: RETINITIS VIRAL
     Dosage: 400 MG, DAILY
     Dates: start: 20201101, end: 20201113
  14. GANCICLOVIR. [Suspect]
     Active Substance: GANCICLOVIR
     Indication: RETINITIS VIRAL
     Route: 031
     Dates: start: 20201024, end: 20201115
  15. CARMELLOSE CALCIUM [Suspect]
     Active Substance: CARBOXYMETHYLCELLULOSE CALCIUM
     Dosage: 6 [DRP] , DAILY
     Dates: start: 20201129
  16. PARACETAMOL [Suspect]
     Active Substance: ACETAMINOPHEN
     Indication: ANALGESIC THERAPY
     Dosage: 4 G
     Dates: start: 20201028
  17. FOSCARNET SODIUM. [Suspect]
     Active Substance: FOSCARNET SODIUM
     Indication: RETINITIS VIRAL
     Dosage: 1 DF, EVERY 48 HOURS
     Route: 031
     Dates: start: 20201024, end: 20201115
  18. ATROPINE SULFATE. [Suspect]
     Active Substance: ATROPINE SULFATE
     Dosage: 2 DRP, DAILY
     Dates: start: 20201029
  19. OXYTETRACYCLINE HYDROCHLORIDE [Suspect]
     Active Substance: OXYTETRACYCLINE HYDROCHLORIDE
     Dates: start: 20201029
  20. TRAMADOL HYDROCHLORIDE. [Suspect]
     Active Substance: TRAMADOL HYDROCHLORIDE
     Indication: ANALGESIC THERAPY
     Dosage: 200 MG, DAILY
     Dates: start: 20201028, end: 20201114

REACTIONS (5)
  - Blood creatinine increased [Recovered/Resolved]
  - Electrolyte depletion [Recovering/Resolving]
  - Renal failure [Unknown]
  - Weight decreased [Unknown]
  - Product use in unapproved indication [Unknown]

NARRATIVE: CASE EVENT DATE: 2020
